FAERS Safety Report 15398119 (Version 4)
Quarter: 2018Q4

REPORT INFORMATION
  Report Type: Report from Study
  Country: DE (occurrence: DE)
  Receive Date: 20180918
  Receipt Date: 20181018
  Transmission Date: 20190204
  Serious: Yes (Hospitalization)
  Sender: FDA-Public Use
  Company Number: DE-CELGENEUS-DEU-20180809166

PATIENT
  Age: 47 Year
  Sex: Female
  Weight: 66 kg

DRUGS (16)
  1. AMITRIPTYLIN [Concomitant]
     Active Substance: AMITRIPTYLINE
     Indication: PRODUCT USED FOR UNKNOWN INDICATION
     Dosage: 12.5 MILLIGRAM
     Route: 065
     Dates: start: 20180827
  2. NEUPOGEN [Concomitant]
     Active Substance: FILGRASTIM
     Indication: PROPHYLAXIS
     Dosage: 20 MILLIGRAM
     Route: 058
     Dates: start: 20180803
  3. NEUPOGEN [Concomitant]
     Active Substance: FILGRASTIM
     Dosage: 40 MILLIGRAM
     Route: 065
     Dates: start: 20180718
  4. ABRAXANE [Suspect]
     Active Substance: PACLITAXEL
     Indication: BREAST CANCER
     Dosage: 221 MILLIGRAM
     Route: 041
     Dates: start: 20180718, end: 20180903
  5. ABRAXANE [Suspect]
     Active Substance: PACLITAXEL
     Dosage: 221 MILLIGRAM
     Route: 041
     Dates: end: 20180912
  6. PANTOPRAZOL [Concomitant]
     Active Substance: PANTOPRAZOLE SODIUM
     Dosage: 40 MILLIGRAM
     Route: 065
     Dates: start: 20180718
  7. FILGRASTIM [Concomitant]
     Active Substance: FILGRASTIM
     Indication: PRODUCT USED FOR UNKNOWN INDICATION
     Dosage: 30 MILLILITER
     Route: 065
     Dates: start: 20180907, end: 20180907
  8. CARBOPLATIN. [Suspect]
     Active Substance: CARBOPLATIN
     Indication: BREAST CANCER
     Dosage: 240 MILLIGRAM
     Route: 041
     Dates: start: 20180718, end: 20180903
  9. FRAXIPARIN [Concomitant]
     Active Substance: NADROPARIN CALCIUM
     Indication: PRODUCT USED FOR UNKNOWN INDICATION
     Dosage: .3 MILLILITER
     Route: 065
     Dates: start: 20180904, end: 20180910
  10. ONDANSETRON [Concomitant]
     Active Substance: ONDANSETRON
     Indication: PRODUCT USED FOR UNKNOWN INDICATION
     Route: 065
     Dates: start: 20180718
  11. MCP [Concomitant]
     Active Substance: METOCLOPRAMIDE HYDROCHLORIDE
     Indication: PRODUCT USED FOR UNKNOWN INDICATION
     Route: 065
     Dates: start: 20180718
  12. SAROTEN [Concomitant]
     Active Substance: AMITRIPTYLINE
     Indication: HEADACHE
     Route: 065
     Dates: start: 20180824
  13. PANTOPRAZOL [Concomitant]
     Active Substance: PANTOPRAZOLE SODIUM
     Indication: PRODUCT USED FOR UNKNOWN INDICATION
     Dosage: 20 MILLIGRAM
     Route: 065
     Dates: start: 20180806
  14. NEUPOGEN [Concomitant]
     Active Substance: FILGRASTIM
     Dosage: 20 MILLIGRAM
     Route: 058
     Dates: start: 20180919
  15. CARBOPLATIN. [Suspect]
     Active Substance: CARBOPLATIN
     Dosage: 240 MILLIGRAM
     Route: 041
     Dates: end: 20180912
  16. EMEND [Concomitant]
     Active Substance: APREPITANT
     Indication: PRODUCT USED FOR UNKNOWN INDICATION
     Dosage: 80 MILLIGRAM
     Route: 065
     Dates: start: 20180718

REACTIONS (3)
  - Pyrexia [Recovered/Resolved]
  - Gastrointestinal infection [Recovered/Resolved]
  - Device related infection [Recovered/Resolved]

NARRATIVE: CASE EVENT DATE: 20180828
